FAERS Safety Report 7486789-6 (Version None)
Quarter: 2011Q2

REPORT INFORMATION
  Report Type: 
  Country: None (occurrence: None)
  Receive Date: 20110517
  Receipt Date: 20110504
  Transmission Date: 20111010
  Serious: Yes (Death, Hospitalization)
  Sender: FDA-Public Use
  Company Number: US-CELGENEUS-163-AB007-11042247

PATIENT
  Sex: Female
  Weight: 47.4 kg

DRUGS (29)
  1. LISINOPRIL [Concomitant]
     Dosage: 5 MILLIGRAM
     Route: 048
  2. NICOTINE [Concomitant]
     Dosage: 21 MILLIGRAM
     Route: 062
  3. OXYGEN [Concomitant]
     Route: 045
     Dates: start: 20110301
  4. PHENOBARBITAL TAB [Concomitant]
     Dosage: 60 MILLIGRAM
     Route: 048
  5. PHENYTOIN [Concomitant]
     Dosage: 100 MILLIGRAM
     Route: 048
  6. PREDNISONE [Concomitant]
     Dosage: 20 MILLIGRAM
     Route: 048
  7. FONDAPARINUX SODIUM [Concomitant]
     Indication: PULMONARY EMBOLISM
     Dosage: 5 MILLIGRAM
     Route: 058
  8. SYMBICORT [Concomitant]
     Dosage: 160-4.5/ 2 PUFFS
     Route: 055
  9. ABRAXANE [Suspect]
     Route: 051
     Dates: end: 20110301
  10. IPRATROPIUM BROMIDE AND ALBUTEROL SULFATE [Concomitant]
     Dosage: 2 PUFFS
     Route: 055
  11. MAGNESIUM OXIDE [Concomitant]
     Dosage: 400/250MG
     Route: 048
  12. SENNA-MINT WAF [Concomitant]
     Dosage: 8.6 MILLIGRAM
     Route: 065
  13. ALPRAZOLAM [Concomitant]
     Indication: ANXIETY
     Dosage: .5 MILLIGRAM
     Route: 048
  14. OXYCODONE HCL [Concomitant]
     Indication: PAIN
     Dosage: 10 MILLIGRAM
     Route: 048
  15. CITALOPRAM [Concomitant]
     Dosage: 40 MILLIGRAM
     Route: 048
  16. FENTANYL [Concomitant]
     Dosage: 25 MICROGRAM
     Route: 062
  17. OXYCODONE/ACETAMINOPHEN [Concomitant]
     Dosage: 5 MILLIGRAM
     Route: 065
  18. ABRAXANE [Suspect]
     Dosage: 380 MILLIGRAM
     Route: 065
     Dates: start: 20110202
  19. LOVENOX [Concomitant]
     Indication: PULMONARY EMBOLISM
     Dosage: 80 MILLIGRAM
     Route: 058
  20. LOVASTATIN [Concomitant]
     Dosage: 20 MILLIGRAM
     Route: 048
  21. MEGESTROL ACETATE [Concomitant]
     Dosage: 40 MILLIGRAM
     Route: 048
  22. OXYCODONE HCL [Concomitant]
     Indication: COUGH
     Dosage: 20 MILLIGRAM
     Route: 048
  23. POTASSIUM CHLORIDE [Concomitant]
     Dosage: 20 MILLIEQUIVALENTS
     Route: 048
  24. ESOMEPRAZOLE MAGNESIUM [Concomitant]
     Dosage: 40 MILLIGRAM
     Route: 065
  25. CARBOPLATIN [Suspect]
     Dosage: 900 MILLIGRAM
     Route: 051
     Dates: start: 20110202, end: 20110202
  26. CARBOPLATIN [Suspect]
     Route: 051
     Dates: end: 20110301
  27. CARVEDILOL [Concomitant]
     Indication: HYPERTENSION
     Dosage: 3.125 MILLIGRAM
     Route: 048
  28. FUROSEMIDE [Concomitant]
     Dosage: 20 MILLIGRAM
     Route: 048
  29. GUAIFENESIN AND PSEUDOEPHEDRINE HYDROCHLORIDE [Concomitant]
     Dosage: 600-60
     Route: 048

REACTIONS (3)
  - PNEUMONIA [None]
  - NON-SMALL CELL LUNG CANCER [None]
  - RESPIRATORY FAILURE [None]
